FAERS Safety Report 8581419-4 (Version None)
Quarter: 2012Q3

REPORT INFORMATION
  Report Type: 
  Country: None (occurrence: None)
  Receive Date: 20120809
  Receipt Date: 20120730
  Transmission Date: 20120928
  Serious: Yes (Hospitalization, Other)
  Sender: FDA-Public Use
  Company Number: US-BAYER-US-2007-009878

PATIENT
  Age: 28 Year
  Sex: Female
  Weight: 104 kg

DRUGS (5)
  1. SIMVASTATIN [Concomitant]
     Dosage: UNK, UNK
  2. YASMIN [Suspect]
     Indication: CONTRACEPTION
     Dosage: 1 DF, QD
     Route: 048
     Dates: start: 20030801, end: 20061210
  3. CETIRIZINE HYDROCHLORIDE [Concomitant]
     Dosage: UNK, UNK
  4. TOPIRAMATE [Concomitant]
     Indication: MIGRAINE
     Dosage: UNK, UNK
  5. VYTORIN [Concomitant]
     Indication: HYPERCHOLESTEROLAEMIA
     Dosage: 10/20, 20 DAYS BEFORE

REACTIONS (8)
  - PSYCHOLOGICAL TRAUMA [None]
  - PAIN [None]
  - INJURY [None]
  - ANXIETY [None]
  - PULMONARY EMBOLISM [None]
  - EMOTIONAL DISTRESS [None]
  - TACHYCARDIA [None]
  - PULMONARY INFARCTION [None]
